FAERS Safety Report 9359737 (Version 1)
Quarter: 2013Q2

REPORT INFORMATION
  Report Type: Report from Study
  Country: US (occurrence: US)
  Receive Date: 20130621
  Receipt Date: 20130621
  Transmission Date: 20140414
  Serious: Yes (Hospitalization)
  Sender: FDA-Public Use
  Company Number: US-ROCHE-1236337

PATIENT
  Sex: Male

DRUGS (2)
  1. PULMOZYME [Suspect]
     Indication: CYSTIC FIBROSIS
     Route: 065
  2. PULMOZYME [Suspect]
     Route: 065

REACTIONS (2)
  - Sinus congestion [Recovering/Resolving]
  - Respiratory disorder [Unknown]
